FAERS Safety Report 6405721-7 (Version None)
Quarter: 2009Q4

REPORT INFORMATION
  Report Type: 
  Country: None (occurrence: None)
  Receive Date: 20091016
  Receipt Date: 20091016
  Transmission Date: 20100525
  Serious: Yes (Disabling)
  Sender: FDA-Public Use
  Company Number: None

PATIENT
  Sex: Male
  Weight: 63.5036 kg

DRUGS (1)
  1. SUPARTZ INJECTIONS [Suspect]
     Indication: ARTHRITIS
     Dosage: 5 SHOTS (1 PER WEEK) INJECTION FIVE KNEE INJECTIONS
     Dates: start: 20081101

REACTIONS (5)
  - ATAXIA [None]
  - DIZZINESS [None]
  - FALL [None]
  - NO THERAPEUTIC RESPONSE [None]
  - VERTIGO [None]
